FAERS Safety Report 4537319-X (Version None)
Quarter: 2004Q4

REPORT INFORMATION
  Report Type: 
  Country: None (occurrence: None)
  Receive Date: 20041221
  Receipt Date: 20041118
  Transmission Date: 20050328
  Serious: Yes (Death)
  Sender: FDA-Public Use
  Company Number: MK200411-0311-1

PATIENT
  Age: 33 Year
  Sex: Male

DRUGS (1)
  1. OXYCODONE AND ACETAMINOPHEN [Suspect]
     Dates: end: 20030101

REACTIONS (8)
  - BRAIN OEDEMA [None]
  - DEPRESSED LEVEL OF CONSCIOUSNESS [None]
  - INCREASED BRONCHIAL SECRETION [None]
  - PULMONARY OEDEMA [None]
  - RESPIRATORY ARREST [None]
  - SNORING [None]
  - THERAPEUTIC AGENT TOXICITY [None]
  - TRACHEAL OBSTRUCTION [None]
